FAERS Safety Report 13742909 (Version 1)
Quarter: 2017Q3

REPORT INFORMATION
  Report Type: Spontaneous
  Country: IT (occurrence: IT)
  Receive Date: 20170711
  Receipt Date: 20170711
  Transmission Date: 20171127
  Serious: Yes (Hospitalization)
  Sender: FDA-Public Use
  Company Number: IT-SA-2017SA123482

PATIENT
  Age: 86 Year
  Sex: Female

DRUGS (6)
  1. CLEXANE [Concomitant]
     Active Substance: ENOXAPARIN SODIUM
     Dosage: 4 IU, IN ?THOUSANDS
     Route: 065
  2. ENALAPRIL [Concomitant]
     Active Substance: ENALAPRIL
  3. GLIMEPIRIDE. [Suspect]
     Active Substance: GLIMEPIRIDE
     Indication: TYPE 2 DIABETES MELLITUS
     Dosage: DOSE:1 UNIT(S)
     Route: 048
     Dates: start: 20170101, end: 20170407
  4. ALLOPURINOL. [Concomitant]
     Active Substance: ALLOPURINOL
     Route: 065
  5. LASIX [Concomitant]
     Active Substance: FUROSEMIDE
     Indication: HYPERTENSION
     Dosage: STRENGTH:^25 MG TABLETS ^30 TABLETS
     Route: 065
  6. OMEPRAZEN [Concomitant]
     Active Substance: OMEPRAZOLE
     Dosage: STRENGTH:^20 MG GASTRORESISTANT CAPSULE^ 14 CAPSULES
     Route: 065

REACTIONS (2)
  - Hypoglycaemia [Unknown]
  - Confusional state [Unknown]

NARRATIVE: CASE EVENT DATE: 20170407
